FAERS Safety Report 5386522-8 (Version None)
Quarter: 2007Q3

REPORT INFORMATION
  Report Type: 
  Country: None (occurrence: None)
  Receive Date: 20070710
  Receipt Date: 20070419
  Transmission Date: 20080115
  Serious: Yes (Other)
  Sender: FDA-Public Use
  Company Number: 8024986

PATIENT
  Age: 33 Year
  Sex: Female

DRUGS (3)
  1. KEPPRA [Suspect]
     Dosage: 1000 MG
     Dates: start: 20040122
  2. ALPRAZOLAM [Concomitant]
  3. CLONAZEPAM [Concomitant]

REACTIONS (2)
  - OVERDOSE [None]
  - POISONING [None]
